FAERS Safety Report 25741876 (Version 1)
Quarter: 2025Q3

REPORT INFORMATION
  Report Type: Spontaneous
  Country: US (occurrence: US)
  Receive Date: 20250829
  Receipt Date: 20250829
  Transmission Date: 20251020
  Serious: Yes (Other)
  Sender: PFIZER
  Company Number: US-PFIZER INC-202500171556

PATIENT

DRUGS (1)
  1. IBRANCE [Suspect]
     Active Substance: PALBOCICLIB

REACTIONS (12)
  - Neutropenia [Unknown]
  - Leukopenia [Unknown]
  - Nausea [Unknown]
  - Diarrhoea [Unknown]
  - Hot flush [Unknown]
  - Dysgeusia [Unknown]
  - Bone density decreased [Unknown]
  - Stomatitis [Unknown]
  - Decreased appetite [Unknown]
  - Mood swings [Unknown]
  - Weight decreased [Unknown]
  - Anaemia [Unknown]
